FAERS Safety Report 6225367-3 (Version None)
Quarter: 2009Q2

REPORT INFORMATION
  Report Type: 
  Country: None (occurrence: None)
  Receive Date: 20090612
  Receipt Date: 20090415
  Transmission Date: 20091009
  Serious: No
  Sender: FDA-Public Use
  Company Number: US-ABBOTT-09P-163-0568634-00

PATIENT
  Sex: Female
  Weight: 72.64 kg

DRUGS (1)
  1. HUMIRA [Suspect]
     Indication: ANKYLOSING SPONDYLITIS
     Route: 058
     Dates: start: 20090325

REACTIONS (10)
  - CHILLS [None]
  - DEPRESSION [None]
  - EPISTAXIS [None]
  - FATIGUE [None]
  - MOOD ALTERED [None]
  - NASAL DRYNESS [None]
  - PAIN [None]
  - SCAB [None]
  - SOMNOLENCE [None]
  - WEIGHT INCREASED [None]
